FAERS Safety Report 6464327-4 (Version None)
Quarter: 2009Q4

REPORT INFORMATION
  Report Type: 
  Country: None (occurrence: None)
  Receive Date: 20091130
  Receipt Date: 20091130
  Transmission Date: 20100525
  Serious: Yes (Other)
  Sender: FDA-Public Use
  Company Number: None

PATIENT
  Age: 63 Year
  Sex: Female
  Weight: 87.7 kg

DRUGS (1)
  1. LEVAQUIN [Suspect]
     Indication: BRONCHITIS
     Dosage: LOWEST DOSE 2 DAILY ORAL 047
     Route: 048
     Dates: start: 20091023

REACTIONS (3)
  - HEART RATE INCREASED [None]
  - PAIN [None]
  - PALLOR [None]
